FAERS Safety Report 9034915 (Version 1)
Quarter: 2013Q1

REPORT INFORMATION
  Report Type: Report from Study
  Country: US (occurrence: US)
  Receive Date: 20130129
  Receipt Date: 20130129
  Transmission Date: 20140127
  Serious: No
  Sender: FDA-Public Use
  Company Number: US-ABBOTT-12P-163-0894720-00

PATIENT
  Age: 44 Year
  Sex: Male

DRUGS (2)
  1. HUMIRA 40 MG/0.8 ML PEN [Suspect]
     Indication: ANKYLOSING SPONDYLITIS
  2. HUMIRA 40 MG/0.8 ML PEN [Suspect]
     Dates: start: 201004

REACTIONS (3)
  - Arthralgia [Not Recovered/Not Resolved]
  - Chest pain [Unknown]
  - Dry skin [Unknown]
